FAERS Safety Report 14815361 (Version 1)
Quarter: 2018Q2

REPORT INFORMATION
  Report Type: Spontaneous
  Country: US (occurrence: US)
  Receive Date: 20180417
  Receipt Date: 20180417
  Transmission Date: 20180711
  Serious: Yes (Life-Threatening, Hospitalization, Disabling, Other)
  Sender: FDA-Public Use
  Company Number: None

PATIENT
  Age: 61 Year
  Sex: Female
  Weight: 84.15 kg

DRUGS (1)
  1. BOTOX COSMETIC [Suspect]
     Active Substance: ONABOTULINUMTOXINA
     Indication: SKIN COSMETIC PROCEDURE
     Dosage: ?          OTHER FREQUENCY:EVERY 4 MONTHS;?
     Route: 030
     Dates: start: 20180213

REACTIONS (2)
  - Muscle spasms [None]
  - Asthma [None]

NARRATIVE: CASE EVENT DATE: 20180213
